FAERS Safety Report 8221798-0 (Version None)
Quarter: 2012Q1

REPORT INFORMATION
  Report Type: 
  Country: None (occurrence: None)
  Receive Date: 20120314
  Receipt Date: 20120306
  Transmission Date: 20120608
  Serious: Yes (Other)
  Sender: FDA-Public Use
  Company Number: DSA_55325_2012

PATIENT
  Sex: Female

DRUGS (1)
  1. XENAZINE [Suspect]
     Indication: HUNTINGTON'S DISEASE
     Dosage: 12.5 MG FREQUENCY UNKNOWN ORAL
     Route: 048
     Dates: start: 20120131, end: 20120302

REACTIONS (7)
  - TREMOR [None]
  - FALL [None]
  - SLEEP DISORDER [None]
  - INJURY [None]
  - SUICIDAL IDEATION [None]
  - CONFUSIONAL STATE [None]
  - EATING DISORDER [None]
